FAERS Safety Report 19570586 (Version 1)
Quarter: 2021Q3

REPORT INFORMATION
  Report Type: Spontaneous
  Country: US (occurrence: US)
  Receive Date: 20210716
  Receipt Date: 20210716
  Transmission Date: 20211014
  Serious: Yes (Hospitalization, Other)
  Sender: FDA-Public Use
  Company Number: US-APOTEX-2021AP017572

PATIENT
  Age: 88 Year
  Sex: Female

DRUGS (3)
  1. ENOXAPARIN [Suspect]
     Active Substance: ENOXAPARIN
     Indication: HYPERCOAGULATION
     Dosage: 60 MILLIGRAM, BID
     Route: 058
  2. CEFTRIAXONE. [Concomitant]
     Active Substance: CEFTRIAXONE
     Indication: COVID-19
     Dosage: UNK
     Route: 065
  3. DOXYCYCLINE. [Concomitant]
     Active Substance: DOXYCYCLINE
     Indication: COVID-19
     Dosage: UNK
     Route: 065

REACTIONS (1)
  - Chest wall haematoma [Recovered/Resolved]
